FAERS Safety Report 10619260 (Version 1)
Quarter: 2014Q4

REPORT INFORMATION
  Report Type: Spontaneous
  Country: DE (occurrence: DE)
  Receive Date: 20141202
  Receipt Date: 20141202
  Transmission Date: 20150529
  Serious: Yes (Other)
  Sender: FDA-Public Use
  Company Number: DE-TEVA-523689GER

PATIENT
  Age: 10 Week
  Sex: Male

DRUGS (2)
  1. QUETIAPINE [Suspect]
     Active Substance: QUETIAPINE
     Indication: DEPRESSION
     Dosage: 100 MG/D DURING PREGNANCY AND AT LEAST FOR FURTHER 11 WEEKS AFTER BIRTH
     Route: 064
  2. QUETIAPINE [Suspect]
     Active Substance: QUETIAPINE
     Dosage: 100 MG/D DURING PREGNANCY AND AT LEAST FOR FURTHER 11 WEEKS AFTER BIRTH
     Route: 063

REACTIONS (3)
  - Respiratory arrest [Recovered/Resolved]
  - Exposure during breast feeding [Unknown]
  - Foetal exposure during pregnancy [Unknown]
